FAERS Safety Report 6152616-2 (Version None)
Quarter: 2009Q2

REPORT INFORMATION
  Report Type: 
  Country: None (occurrence: None)
  Receive Date: 20090409
  Receipt Date: 20090112
  Transmission Date: 20091009
  Serious: Yes (Disabling)
  Sender: FDA-Public Use
  Company Number: DSA_33085_2009

PATIENT
  Sex: Male

DRUGS (9)
  1. XENAZINE [Suspect]
     Indication: OBSESSIVE-COMPULSIVE DISORDER
     Dosage: DF, 25 MG TID, 1/2 TABLET TID
     Dates: start: 20080201, end: 20080101
  2. XENAZINE [Suspect]
     Indication: TIC
     Dosage: DF, 25 MG TID, 1/2 TABLET TID
     Dates: start: 20080201, end: 20080101
  3. XENAZINE [Suspect]
     Indication: OBSESSIVE-COMPULSIVE DISORDER
     Dosage: DF, 25 MG TID, 1/2 TABLET TID
     Dates: start: 20080101
  4. XENAZINE [Suspect]
     Indication: TIC
     Dosage: DF, 25 MG TID, 1/2 TABLET TID
     Dates: start: 20080101
  5. ZOLOFT [Suspect]
     Indication: DRUG USE FOR UNKNOWN INDICATION
     Dosage: DF
     Dates: start: 20080101
  6. ANTIDEPRESSANTS [Suspect]
     Indication: DRUG USE FOR UNKNOWN INDICATION
     Dosage: DF
  7. FLUPHENAZINE [Concomitant]
  8. XANAX [Concomitant]
  9. LEXAPRO [Concomitant]

REACTIONS (13)
  - ANXIETY [None]
  - CONDITION AGGRAVATED [None]
  - CRYING [None]
  - DRUG INEFFECTIVE [None]
  - EDUCATIONAL PROBLEM [None]
  - FATIGUE [None]
  - FEELING ABNORMAL [None]
  - INCORRECT DOSE ADMINISTERED [None]
  - NERVOUSNESS [None]
  - PSYCHOMOTOR HYPERACTIVITY [None]
  - SOMNOLENCE [None]
  - TIC [None]
  - TREATMENT NONCOMPLIANCE [None]
